FAERS Safety Report 6200680-4 (Version None)
Quarter: 2009Q2

REPORT INFORMATION
  Report Type: 
  Country: None (occurrence: None)
  Receive Date: 20090522
  Receipt Date: 20090513
  Transmission Date: 20091009
  Serious: Yes (Other)
  Sender: FDA-Public Use
  Company Number: GB-MERCK-0904GBR00011

PATIENT
  Age: 81 Year
  Sex: Female
  Weight: 79 kg

DRUGS (5)
  1. JANUVIA [Suspect]
     Indication: TYPE 2 DIABETES MELLITUS
     Route: 048
     Dates: start: 20071029, end: 20071204
  2. ATORVASTATIN [Concomitant]
     Indication: BLOOD CHOLESTEROL ABNORMAL
     Route: 065
     Dates: start: 20021107
  3. LISINOPRIL [Concomitant]
     Indication: HYPERTENSION
     Route: 065
     Dates: start: 20040924
  4. METFORMIN [Concomitant]
     Indication: DIABETES MELLITUS
     Route: 065
  5. ALBUTEROL [Concomitant]
     Indication: ASTHMA
     Dates: start: 20021028

REACTIONS (1)
  - GLOMERULAR FILTRATION RATE DECREASED [None]
